FAERS Safety Report 15220707 (Version 1)
Quarter: 2018Q3

REPORT INFORMATION
  Report Type: Spontaneous
  Country: US (occurrence: US)
  Receive Date: 20180704
  Receipt Date: 20180704
  Transmission Date: 20181010
  Serious: Yes (Life-Threatening, Hospitalization, Disabling, Other)
  Sender: FDA-Public Use
  Company Number: None

PATIENT
  Age: 52 Year
  Sex: Female
  Weight: 57.15 kg

DRUGS (7)
  1. PHOSPHATE?NAK [Concomitant]
  2. VITAMIN C [Concomitant]
     Active Substance: ASCORBIC ACID
  3. VIT B 12 [Concomitant]
  4. VITAMIN D [Concomitant]
     Active Substance: CHOLECALCIFEROL
  5. INJECTAFER [Suspect]
     Active Substance: FERRIC CARBOXYMALTOSE
     Indication: SERUM FERRITIN DECREASED
     Dosage: ?          OTHER STRENGTH:1;QUANTITY:1 INJECTION(S);?
     Route: 042
     Dates: start: 20180516, end: 20180517
  6. METANX [Concomitant]
     Active Substance: LEVOMEFOLATE CALCIUM\METHYLCOBALAMIN\PYRIDOXAL PHOSPHATE ANHYDROUS
  7. RESTASIS [Concomitant]
     Active Substance: CYCLOSPORINE

REACTIONS (11)
  - Flushing [None]
  - Back pain [None]
  - Pain [None]
  - Dizziness [None]
  - Neck pain [None]
  - Pruritus [None]
  - Myalgia [None]
  - Urticaria [None]
  - Hypophosphataemia [None]
  - Headache [None]
  - Arthralgia [None]

NARRATIVE: CASE EVENT DATE: 20180516
